FAERS Safety Report 19459237 (Version 1)
Quarter: 2021Q2

REPORT INFORMATION
  Report Type: Spontaneous
  Country: US (occurrence: US)
  Receive Date: 20210624
  Receipt Date: 20210624
  Transmission Date: 20210717
  Serious: Yes (Other)
  Sender: FDA-Public Use
  Company Number: ALC2021US003870

PATIENT
  Age: 68 Year
  Sex: Female

DRUGS (15)
  1. POVIDONE?IODINE. [Concomitant]
     Active Substance: POVIDONE-IODINE
     Indication: ANTIBIOTIC PROPHYLAXIS
     Dosage: 5%
     Route: 065
     Dates: start: 20210504, end: 20210504
  2. OMIDRIA [Concomitant]
     Active Substance: KETOROLAC\PHENYLEPHRINE
     Indication: PRODUCT USED FOR UNKNOWN INDICATION
     Dosage: UNK
     Route: 065
     Dates: start: 20210504, end: 20210504
  3. BSS [Suspect]
     Active Substance: CALCIUM CHLORIDE\MAGNESIUM CHLORIDE\POTASSIUM CHLORIDE\SODIUM ACETATE\SODIUM CHLORIDE\SODIUM CITRATE
     Dosage: UNK
     Route: 065
  4. OCUFEN [BROMFENAC SODIUM] [Concomitant]
     Indication: PREOPERATIVE CARE
     Dosage: UNK
     Route: 065
     Dates: start: 20210504, end: 20210504
  5. LIDOCAINE. [Concomitant]
     Active Substance: LIDOCAINE
     Indication: PRODUCT USED FOR UNKNOWN INDICATION
     Dosage: UNK
     Route: 065
     Dates: start: 20210504, end: 20210504
  6. VISCOAT [CHONDROITIN SULFATE SODIUM;HYALURONATE SODIUM] [Concomitant]
     Active Substance: CHONDROITIN SULFATE SODIUM NOS\HYALURONATE SODIUM
     Indication: PRODUCT USED FOR UNKNOWN INDICATION
     Dosage: UNK
     Route: 065
  7. TETRACAINE. [Concomitant]
     Active Substance: TETRACAINE
     Indication: PREOPERATIVE CARE
     Dosage: UNK
     Route: 065
     Dates: start: 20210504, end: 20210504
  8. TROPICAMIDE. [Concomitant]
     Active Substance: TROPICAMIDE
     Indication: PREOPERATIVE CARE
     Dosage: UNK
     Route: 065
     Dates: start: 20210504, end: 20210504
  9. DUOVISC [Concomitant]
     Active Substance: CHONDROITIN SULFATE SODIUM NOS\HYALURONATE SODIUM
     Indication: PRODUCT USED FOR UNKNOWN INDICATION
     Dosage: UNK
     Route: 065
  10. BSS [Suspect]
     Active Substance: CALCIUM CHLORIDE\MAGNESIUM CHLORIDE\POTASSIUM CHLORIDE\SODIUM ACETATE\SODIUM CHLORIDE\SODIUM CITRATE
     Dosage: UNK
     Route: 065
  11. PROVISC [Concomitant]
     Active Substance: HYALURONATE SODIUM
     Indication: PRODUCT USED FOR UNKNOWN INDICATION
     Route: 065
  12. BSS [Suspect]
     Active Substance: CALCIUM CHLORIDE\MAGNESIUM CHLORIDE\POTASSIUM CHLORIDE\SODIUM ACETATE\SODIUM CHLORIDE\SODIUM CITRATE
     Indication: LENS EXTRACTION
     Dosage: UNK
     Route: 065
  13. POVIDONE?IODINE. [Concomitant]
     Active Substance: POVIDONE-IODINE
     Indication: PREOPERATIVE CARE
     Dosage: 10 %
     Route: 065
     Dates: start: 20210504, end: 20210504
  14. PHENYLEPHRINE [Concomitant]
     Active Substance: PHENYLEPHRINE HYDROCHLORIDE
     Indication: PREOPERATIVE CARE
     Dosage: UNK
     Route: 065
     Dates: start: 20210504, end: 20210504
  15. BETADINE [Concomitant]
     Active Substance: POVIDONE-IODINE
     Indication: ANTIBIOTIC PROPHYLAXIS
     Dosage: UNK
     Route: 031
     Dates: start: 20210504, end: 20210504

REACTIONS (6)
  - Uveitis [Unknown]
  - Endophthalmitis [Unknown]
  - Hypopyon [Unknown]
  - Toxic anterior segment syndrome [Unknown]
  - Aqueous fibrin [Unknown]
  - Inflammation [Unknown]

NARRATIVE: CASE EVENT DATE: 20210504
